FAERS Safety Report 6773935-2 (Version None)
Quarter: 2010Q2

REPORT INFORMATION
  Report Type: 
  Country: None (occurrence: None)
  Receive Date: 20100615
  Receipt Date: 20100615
  Transmission Date: 20101027
  Serious: Yes (Other)
  Sender: FDA-Public Use
  Company Number: None

PATIENT
  Sex: Male
  Weight: 99.3377 kg

DRUGS (2)
  1. NORTRIPTYLINE HCL [Suspect]
     Indication: PANIC DISORDER
     Dosage: 25 MG QD PO
     Route: 048
     Dates: start: 20100522
  2. NORTRIPTYLINE HCL [Suspect]
     Indication: PANIC DISORDER
     Dosage: 25 MG QD PO
     Route: 048
     Dates: start: 20100518

REACTIONS (2)
  - PANIC ATTACK [None]
  - PRODUCT SUBSTITUTION ISSUE [None]
